FAERS Safety Report 21886153 (Version 1)
Quarter: 2023Q1

REPORT INFORMATION
  Report Type: Spontaneous
  Country: FR (occurrence: FR)
  Receive Date: 20230119
  Receipt Date: 20230119
  Transmission Date: 20230418
  Serious: Yes (Death)
  Sender: FDA-Public Use
  Company Number: FR-BAXTER-2022BAX026232

PATIENT
  Age: 78 Year
  Sex: Male

DRUGS (3)
  1. BORTEZOMIB [Suspect]
     Active Substance: BORTEZOMIB
     Indication: Product used for unknown indication
     Dosage: 2 MG (2 MG/DOSE 1 DOSE(S)/WEEK 4 WEEK(S)/CYCLE)
     Route: 065
  2. DEXAMETHASONE [Suspect]
     Active Substance: DEXAMETHASONE
     Indication: Product used for unknown indication
     Dosage: 20 MG (20 MG/DOSE 1 DOSE(S)/WEEK 4 WEEK(S)/CYCLE)
     Route: 065
  3. CYCLOPHOSPHAMIDE [Suspect]
     Active Substance: CYCLOPHOSPHAMIDE
     Indication: Product used for unknown indication
     Dosage: 300 MG (300 MG/DOSE 1 DOSE(S)/WEEK 3 WEEK(S)/CY)
     Route: 065

REACTIONS (1)
  - Palliative care [Fatal]
